FAERS Safety Report 8876500 (Version 1)
Quarter: 2012Q4

REPORT INFORMATION
  Report Type: 
  Country: US (occurrence: US)
  Receive Date: 20121023
  Receipt Date: 20121023
  Transmission Date: 20130627
  Serious: Yes (Other)
  Sender: FDA-Public Use
  Company Number: US-ASTELLAS-2012US002658

PATIENT
  Age: 43 None
  Sex: Male
  Weight: 58 kg

DRUGS (7)
  1. PROGRAF [Suspect]
     Indication: RENAL TRANSPLANT
     Dosage: 0.5 mg, UID/QD
     Route: 048
     Dates: start: 20020522
  2. PROGRAF [Suspect]
     Dosage: 0.5 mg, bid
     Route: 048
  3. PROGRAF [Suspect]
     Dosage: 0.5 mg, UID/QD
     Route: 048
     Dates: start: 201203
  4. RAPAMUNE [Suspect]
     Indication: RENAL TRANSPLANT
     Dosage: 2 mg, UID/QD
     Route: 048
     Dates: start: 2002
  5. RAPAMUNE [Suspect]
     Dosage: 0.5 mg, UID/QD
     Route: 048
     Dates: start: 201203
  6. PREDNISONE [Suspect]
     Indication: PRODUCT USED FOR UNKNOWN INDICATION
     Dosage: UNK
     Route: 065
  7. ANTIHYPERTENSIVES [Concomitant]
     Indication: HYPERTENSION
     Dosage: UNK
     Route: 065

REACTIONS (13)
  - Squamous cell carcinoma [Unknown]
  - Diabetes mellitus [Unknown]
  - Cardiac failure congestive [Unknown]
  - Immunosuppressant drug level increased [Unknown]
  - Immunosuppressant drug level increased [Unknown]
  - Tremor [Unknown]
  - Headache [Unknown]
  - Nausea [Unknown]
  - Vomiting [Unknown]
  - Fatigue [Unknown]
  - Decreased appetite [Unknown]
  - Abdominal discomfort [Unknown]
  - Diarrhoea [Unknown]
